FAERS Safety Report 4602746-9 (Version None)
Quarter: 2005Q1

REPORT INFORMATION
  Report Type: 
  Country: None (occurrence: None)
  Receive Date: 20050309
  Receipt Date: 20041014
  Transmission Date: 20050727
  Serious: Yes (Other)
  Sender: FDA-Public Use
  Company Number: DE-MERCK-0410DEU00472

PATIENT
  Age: 58 Year
  Sex: Male

DRUGS (3)
  1. VIOXX [Suspect]
     Indication: INTERVERTEBRAL DISC DISORDER
     Route: 048
     Dates: start: 19990101, end: 20041001
  2. METOPROLOL [Concomitant]
     Route: 048
     Dates: start: 19990101
  3. ALLOPURINOL [Concomitant]
     Route: 048
     Dates: start: 19940101

REACTIONS (10)
  - DEAFNESS [None]
  - DEAFNESS NEUROSENSORY [None]
  - DEPRESSION [None]
  - DIZZINESS [None]
  - ENCEPHALOPATHY [None]
  - LACUNAR INFARCTION [None]
  - POLYNEUROPATHY [None]
  - RETINOPATHY HYPERTENSIVE [None]
  - SPINAL OSTEOARTHRITIS [None]
  - TINNITUS [None]
